FAERS Safety Report 17519755 (Version 1)
Quarter: 2020Q1

REPORT INFORMATION
  Report Type: Spontaneous
  Country: US (occurrence: US)
  Receive Date: 20200309
  Receipt Date: 20200309
  Transmission Date: 20200409
  Serious: Yes (Hospitalization)
  Sender: FDA-Public Use
  Company Number: None

PATIENT
  Age: 72 Year
  Sex: Male

DRUGS (11)
  1. OXYCODONE AND ACETAMINOPHEN [Concomitant]
     Active Substance: ACETAMINOPHEN\OXYCODONE HYDROCHLORIDE
  2. SEVELAMER [Concomitant]
     Active Substance: SEVELAMER
  3. GABAPENTIN. [Concomitant]
     Active Substance: GABAPENTIN
  4. AZATHIOPRINE. [Concomitant]
     Active Substance: AZATHIOPRINE
  5. CALCITRIOL. [Concomitant]
     Active Substance: CALCITRIOL
  6. ONDANSETRON [Concomitant]
     Active Substance: ONDANSETRON
  7. DOXYCYCL HYC [Concomitant]
  8. HYDROCO/APAP [Concomitant]
     Active Substance: ACETAMINOPHEN\HYDROCODONE
  9. SMZ/TMP DS [Concomitant]
     Active Substance: SULFAMETHOXAZOLE\TRIMETHOPRIM
  10. TRAMADOL. [Concomitant]
     Active Substance: TRAMADOL
  11. HUMIRA [Suspect]
     Active Substance: ADALIMUMAB
     Indication: CROHN^S DISEASE
     Dosage: ?          OTHER FREQUENCY:EVERY WEEK;?
     Route: 058
     Dates: start: 20190829

REACTIONS (1)
  - Cellulitis [None]
